FAERS Safety Report 8966317 (Version 2)
Quarter: 2013Q1

REPORT INFORMATION
  Report Type: Spontaneous
  Country: US (occurrence: US)
  Receive Date: 20121217
  Receipt Date: 20130313
  Transmission Date: 20140127
  Serious: Yes (Other)
  Sender: FDA-Public Use
  Company Number: PHEH2012US024479

PATIENT
  Age: 53 Year
  Sex: Female

DRUGS (4)
  1. GILENYA [Suspect]
     Indication: MULTIPLE SCLEROSIS
     Dosage: 0.5 MG, QD
     Route: 048
     Dates: start: 20121107
  2. PROZAC [Concomitant]
     Indication: DEPRESSION
     Dosage: 40 MG, QD
     Route: 048
  3. NUVIGIL [Concomitant]
     Indication: FATIGUE
     Dosage: 150 MG, QD
     Route: 048
  4. GABAPENTIN [Concomitant]
     Indication: PERIODIC LIMB MOVEMENT DISORDER
     Dosage: 300 MG, UNK
     Route: 048

REACTIONS (6)
  - Dysstasia [Not Recovered/Not Resolved]
  - Fall [Not Recovered/Not Resolved]
  - Abscess jaw [Not Recovered/Not Resolved]
  - Gait disturbance [Not Recovered/Not Resolved]
  - Dizziness [Not Recovered/Not Resolved]
  - Headache [Not Recovered/Not Resolved]
